FAERS Safety Report 19364294 (Version 1)
Quarter: 2021Q2

REPORT INFORMATION
  Report Type: Spontaneous
  Country: US (occurrence: US)
  Receive Date: 20210602
  Receipt Date: 20210602
  Transmission Date: 20210717
  Serious: Yes (Hospitalization)
  Sender: FDA-Public Use
  Company Number: None

PATIENT
  Sex: Male

DRUGS (10)
  1. ENAPRIL TAB 2.5MG [Concomitant]
     Dates: start: 20210121
  2. TAMSULOSIN CAP 0.4 MG [Concomitant]
     Dates: start: 20210421
  3. DOFETILIDE. [Suspect]
     Active Substance: DOFETILIDE
     Indication: ESSENTIAL HYPERTENSION
     Dosage: ?          OTHER FREQUENCY:EVERY 12 HOURS;?
     Route: 048
     Dates: start: 20180112
  4. DONEPEZIL TAB 10MG [Concomitant]
     Active Substance: DONEPEZIL
     Dates: start: 20201124
  5. RANOLAZINE TAB 1000MG [Concomitant]
     Dates: start: 20210223
  6. LEVOTHYROXIN TAB 75MCG [Concomitant]
     Dates: start: 20210216
  7. TRIAMINOLON CRE 0.15 [Concomitant]
     Dates: start: 20210108
  8. FINASTERIDE TAB 5MG [Concomitant]
     Active Substance: FINASTERIDE
     Dates: start: 20210524
  9. METFORMIN [Concomitant]
     Active Substance: METFORMIN HYDROCHLORIDE
     Dates: start: 20210427
  10. BISOPROL FUM TAB 5MB [Concomitant]
     Dates: start: 20210121

REACTIONS (3)
  - Hospitalisation [None]
  - Device issue [None]
  - Therapy interrupted [None]
